FAERS Safety Report 8122451-4 (Version None)
Quarter: 2012Q1

REPORT INFORMATION
  Report Type: 
  Country: None (occurrence: None)
  Receive Date: 20120208
  Receipt Date: 20120127
  Transmission Date: 20120608
  Serious: Yes (Hospitalization, Other)
  Sender: FDA-Public Use
  Company Number: US-ELI_LILLY_AND_COMPANY-US201108005390

PATIENT
  Sex: Male

DRUGS (9)
  1. CADUET [Concomitant]
     Indication: HYPERTENSION
  2. FORTEO [Suspect]
     Indication: OSTEOPOROSIS
     Dosage: 20 UG, QD
     Route: 065
  3. FORTEO [Suspect]
     Dosage: 20 UG, QD
     Route: 065
  4. TESTOSTERONE [Concomitant]
  5. AMBIEN [Concomitant]
     Indication: SLEEP DISORDER
  6. VITAMIN TAB [Concomitant]
  7. VITAMIN D [Concomitant]
  8. TRACE ELEMENTS [Concomitant]
  9. LIQUID CALCIUM                     /00751501/ [Concomitant]

REACTIONS (7)
  - SURGERY [None]
  - BACK PAIN [None]
  - SKIN DISCOLOURATION [None]
  - LIMB INJURY [None]
  - BONE DENSITY DECREASED [None]
  - MUSCULOSKELETAL CHEST PAIN [None]
  - MUSCLE SPASMS [None]
